FAERS Safety Report 8489868-X (Version None)
Quarter: 2012Q3

REPORT INFORMATION
  Report Type: 
  Country: None (occurrence: None)
  Receive Date: 20120705
  Receipt Date: 20120628
  Transmission Date: 20120928
  Serious: Yes (Other)
  Sender: FDA-Public Use
  Company Number: PHHY2012GB055616

PATIENT
  Age: 44 Year
  Sex: Male

DRUGS (2)
  1. AMIODARONE HCL [Suspect]
     Indication: ATRIAL FLUTTER
     Dosage: 300 MG, UNK
     Route: 042
  2. AMIODARONE HCL [Suspect]
     Dosage: 900 MG, UNK
     Route: 042

REACTIONS (5)
  - BLOOD CREATININE INCREASED [None]
  - URINE OUTPUT DECREASED [None]
  - HEPATOTOXICITY [None]
  - GLOMERULAR FILTRATION RATE DECREASED [None]
  - HYPOTENSION [None]
